FAERS Safety Report 13832480 (Version 3)
Quarter: 2017Q3

REPORT INFORMATION
  Report Type: Report from Study
  Country: US (occurrence: US)
  Receive Date: 20170804
  Receipt Date: 20170920
  Transmission Date: 20171127
  Serious: Yes (Death, Other)
  Sender: FDA-Public Use
  Company Number: PHEH2017US024142

PATIENT
  Age: 86 Year
  Sex: Male
  Weight: 68.9 kg

DRUGS (1)
  1. ENTRESTO [Suspect]
     Active Substance: SACUBITRIL\VALSARTAN
     Indication: PRODUCT USED FOR UNKNOWN INDICATION
     Route: 065

REACTIONS (4)
  - Carpal tunnel syndrome [Unknown]
  - Heart valve incompetence [Unknown]
  - Death [Fatal]
  - Prostatomegaly [Unknown]

NARRATIVE: CASE EVENT DATE: 20170917
